FAERS Safety Report 19378348 (Version 2)
Quarter: 2021Q3

REPORT INFORMATION
  Report Type: Report from Study
  Country: US (occurrence: US)
  Receive Date: 20210605
  Receipt Date: 20210817
  Transmission Date: 20211014
  Serious: Yes (Death, Other)
  Sender: FDA-Public Use
  Company Number: US-TAKEDA-2021TUS034885

PATIENT
  Sex: Female

DRUGS (41)
  1. TEDUGLUTIDE [Suspect]
     Active Substance: TEDUGLUTIDE
     Dosage: 3.0 MILLIGRAM,(0.03MG/KG),QD
     Route: 065
     Dates: start: 20141209, end: 20150108
  2. TEDUGLUTIDE [Suspect]
     Active Substance: TEDUGLUTIDE
     Dosage: 3.0 MILLIGRAM,(0.03MG/KG),QD
     Route: 065
     Dates: start: 20141209, end: 20150108
  3. TEDUGLUTIDE [Suspect]
     Active Substance: TEDUGLUTIDE
     Dosage: 3.0 MILLIGRAM,(0.03MG/KG),QD
     Route: 065
     Dates: start: 20150126, end: 20150302
  4. TEDUGLUTIDE [Suspect]
     Active Substance: TEDUGLUTIDE
     Dosage: 3.0 MILLIGRAM,(0.03MG/KG),QD
     Route: 065
     Dates: start: 20150126, end: 20150302
  5. TEDUGLUTIDE [Suspect]
     Active Substance: TEDUGLUTIDE
     Dosage: 3.0 MILLIGRAM,(0.03MG/KG),QD
     Route: 065
     Dates: start: 20150317, end: 20150426
  6. TEDUGLUTIDE [Suspect]
     Active Substance: TEDUGLUTIDE
     Dosage: 3.0 MILLIGRAM,(0.03MG/KG),QD
     Route: 065
     Dates: start: 20150511, end: 20150601
  7. TEDUGLUTIDE [Suspect]
     Active Substance: TEDUGLUTIDE
     Dosage: 3.0 MILLIGRAM,(0.03MG/KG),QD
     Route: 065
     Dates: start: 20150511, end: 20150601
  8. TEDUGLUTIDE [Suspect]
     Active Substance: TEDUGLUTIDE
     Dosage: 1.3 MILLIGRAM, (0.025MG/KG), 3/WEEK
     Route: 065
     Dates: start: 20200419, end: 20210419
  9. TEDUGLUTIDE [Suspect]
     Active Substance: TEDUGLUTIDE
     Dosage: 3.0 MILLIGRAM,(0.05MG/KG),QD
     Route: 065
     Dates: start: 20150601, end: 20170120
  10. TEDUGLUTIDE [Suspect]
     Active Substance: TEDUGLUTIDE
     Dosage: 3.0 MILLIGRAM,(0.03MG/KG),QD
     Route: 065
     Dates: start: 20141009, end: 20141108
  11. TEDUGLUTIDE [Suspect]
     Active Substance: TEDUGLUTIDE
     Dosage: 1.2 MILLIGRAM,(0.03MG/KG),QD
     Route: 065
     Dates: start: 20170120, end: 20200419
  12. TEDUGLUTIDE [Suspect]
     Active Substance: TEDUGLUTIDE
     Dosage: 1.3 MILLIGRAM, (0.025MG/KG), 3/WEEK
     Route: 065
     Dates: start: 20200419, end: 20210419
  13. TEDUGLUTIDE [Suspect]
     Active Substance: TEDUGLUTIDE
     Dosage: 1.3 MILLIGRAM, (0.025MG/KG), 3/WEEK
     Route: 065
     Dates: start: 20200419, end: 20210419
  14. OXYCODONE AND ACETAMINOPHEN [Concomitant]
     Active Substance: ACETAMINOPHEN\OXYCODONE HYDROCHLORIDE
     Indication: CLAVICLE FRACTURE
     Dosage: 5 MILLIGRAM, TID
     Route: 048
     Dates: start: 20200930, end: 20201007
  15. TEDUGLUTIDE [Suspect]
     Active Substance: TEDUGLUTIDE
     Indication: SHORT-BOWEL SYNDROME
     Dosage: 3.0 MILLIGRAM,(0.03MG/KG),QD
     Route: 065
     Dates: start: 20130802, end: 20140908
  16. TEDUGLUTIDE [Suspect]
     Active Substance: TEDUGLUTIDE
     Dosage: 3.0 MILLIGRAM,(0.05MG/KG),QD
     Route: 065
     Dates: start: 20150601, end: 20170120
  17. TEDUGLUTIDE [Suspect]
     Active Substance: TEDUGLUTIDE
     Dosage: 3.0 MILLIGRAM,(0.05MG/KG),QD
     Route: 065
     Dates: start: 20150601, end: 20170120
  18. TEDUGLUTIDE [Suspect]
     Active Substance: TEDUGLUTIDE
     Dosage: 3.0 MILLIGRAM,(0.03MG/KG),QD
     Route: 065
     Dates: start: 20141009, end: 20141108
  19. TEDUGLUTIDE [Suspect]
     Active Substance: TEDUGLUTIDE
     Dosage: 3.0 MILLIGRAM,(0.03MG/KG),QD
     Route: 065
     Dates: start: 20141009, end: 20141108
  20. TEDUGLUTIDE [Suspect]
     Active Substance: TEDUGLUTIDE
     Dosage: 3.0 MILLIGRAM,(0.03MG/KG),QD
     Route: 065
     Dates: start: 20150126, end: 20150302
  21. TEDUGLUTIDE [Suspect]
     Active Substance: TEDUGLUTIDE
     Dosage: 3.0 MILLIGRAM,(0.03MG/KG),QD
     Route: 065
     Dates: start: 20150511, end: 20150601
  22. TEDUGLUTIDE [Suspect]
     Active Substance: TEDUGLUTIDE
     Indication: SHORT-BOWEL SYNDROME
     Dosage: 3.0 MILLIGRAM,(0.03MG/KG),QD
     Route: 065
     Dates: start: 20130802, end: 20140908
  23. TEDUGLUTIDE [Suspect]
     Active Substance: TEDUGLUTIDE
     Dosage: 3.0 MILLIGRAM,(0.03MG/KG),QD
     Route: 065
     Dates: start: 20150511, end: 20150601
  24. TEDUGLUTIDE [Suspect]
     Active Substance: TEDUGLUTIDE
     Indication: SHORT-BOWEL SYNDROME
     Dosage: 3.0 MILLIGRAM,(0.03MG/KG),QD
     Route: 065
     Dates: start: 20130802, end: 20140908
  25. TEDUGLUTIDE [Suspect]
     Active Substance: TEDUGLUTIDE
     Dosage: 1.3 MILLIGRAM, (0.025MG/KG), 3/WEEK
     Route: 065
     Dates: start: 20200419, end: 20210419
  26. IMODIUM A?D [Concomitant]
     Active Substance: LOPERAMIDE HYDROCHLORIDE
     Indication: DIARRHOEA
     Dosage: 2.0 GRAM, TBSP
     Route: 048
     Dates: start: 202004
  27. TEDUGLUTIDE [Suspect]
     Active Substance: TEDUGLUTIDE
     Dosage: 3.0 MILLIGRAM,(0.03MG/KG),QD
     Route: 065
     Dates: start: 20141009, end: 20141108
  28. TEDUGLUTIDE [Suspect]
     Active Substance: TEDUGLUTIDE
     Dosage: 3.0 MILLIGRAM,(0.03MG/KG),QD
     Route: 065
     Dates: start: 20141209, end: 20150108
  29. TEDUGLUTIDE [Suspect]
     Active Substance: TEDUGLUTIDE
     Dosage: 3.0 MILLIGRAM,(0.03MG/KG),QD
     Route: 065
     Dates: start: 20150126, end: 20150302
  30. OXYCODONE AND ACETAMINOPHEN [Concomitant]
     Active Substance: ACETAMINOPHEN\OXYCODONE HYDROCHLORIDE
     Indication: RIB FRACTURE
  31. TEDUGLUTIDE [Suspect]
     Active Substance: TEDUGLUTIDE
     Dosage: 3.0 MILLIGRAM,(0.03MG/KG),QD
     Route: 065
     Dates: start: 20141209, end: 20150108
  32. TEDUGLUTIDE [Suspect]
     Active Substance: TEDUGLUTIDE
     Dosage: 1.2 MILLIGRAM,(0.03MG/KG),QD
     Route: 065
     Dates: start: 20170120, end: 20200419
  33. TEDUGLUTIDE [Suspect]
     Active Substance: TEDUGLUTIDE
     Dosage: 1.2 MILLIGRAM,(0.03MG/KG),QD
     Route: 065
     Dates: start: 20170120, end: 20200419
  34. CHOLESTYRAMINE. [Concomitant]
     Active Substance: CHOLESTYRAMINE
     Indication: DIARRHOEA
     Dosage: 2.0 GRAM, BID
     Route: 048
     Dates: start: 202004
  35. TEDUGLUTIDE [Suspect]
     Active Substance: TEDUGLUTIDE
     Indication: SHORT-BOWEL SYNDROME
     Dosage: 3.0 MILLIGRAM,(0.03MG/KG),QD
     Route: 065
     Dates: start: 20130802, end: 20140908
  36. TEDUGLUTIDE [Suspect]
     Active Substance: TEDUGLUTIDE
     Dosage: 3.0 MILLIGRAM,(0.05MG/KG),QD
     Route: 065
     Dates: start: 20150601, end: 20170120
  37. TEDUGLUTIDE [Suspect]
     Active Substance: TEDUGLUTIDE
     Dosage: 3.0 MILLIGRAM,(0.03MG/KG),QD
     Route: 065
     Dates: start: 20150317, end: 20150426
  38. TEDUGLUTIDE [Suspect]
     Active Substance: TEDUGLUTIDE
     Dosage: 3.0 MILLIGRAM,(0.03MG/KG),QD
     Route: 065
     Dates: start: 20150317, end: 20150426
  39. TEDUGLUTIDE [Suspect]
     Active Substance: TEDUGLUTIDE
     Dosage: 3.0 MILLIGRAM,(0.03MG/KG),QD
     Route: 065
     Dates: start: 20150317, end: 20150426
  40. TEDUGLUTIDE [Suspect]
     Active Substance: TEDUGLUTIDE
     Dosage: 1.2 MILLIGRAM,(0.03MG/KG),QD
     Route: 065
     Dates: start: 20170120, end: 20200419
  41. OPIUM TINCTURE [Concomitant]
     Active Substance: MORPHINE
     Indication: DIARRHOEA
     Dosage: 12 GTT DROPS, TID
     Route: 048
     Dates: start: 20200318

REACTIONS (1)
  - Renal failure [Fatal]

NARRATIVE: CASE EVENT DATE: 2017
